FAERS Safety Report 22251778 (Version 1)
Quarter: 2023Q2

REPORT INFORMATION
  Report Type: Spontaneous
  Country: US (occurrence: US)
  Receive Date: 20230425
  Receipt Date: 20230425
  Transmission Date: 20230722
  Serious: Yes (Other)
  Sender: FDA-Public Use
  Company Number: US-HORIZON THERAPEUTICS-HZN-2023-002926

PATIENT

DRUGS (1)
  1. TEPEZZA [Suspect]
     Active Substance: TEPROTUMUMAB-TRBW
     Indication: Product used for unknown indication
     Dosage: FIRST DOSE
     Route: 065

REACTIONS (7)
  - Gastrointestinal pain [Unknown]
  - Hyperhidrosis [Unknown]
  - Muscle spasms [Unknown]
  - Alopecia [Unknown]
  - Fatigue [Unknown]
  - Deafness permanent [Unknown]
  - Exophthalmos [Unknown]
